FAERS Safety Report 13881245 (Version 1)
Quarter: 2017Q3

REPORT INFORMATION
  Report Type: Report from Study
  Country: None (occurrence: BR)
  Receive Date: 20170818
  Receipt Date: 20170818
  Transmission Date: 20171127
  Serious: Yes (Other)
  Sender: FDA-Public Use
  Company Number: BR-ABBVIE-17K-020-2073801-00

PATIENT
  Age: 63 Year
  Sex: Female
  Weight: 74 kg

DRUGS (1)
  1. HUMIRA [Suspect]
     Active Substance: ADALIMUMAB
     Indication: RHEUMATOID ARTHRITIS
     Route: 058
     Dates: start: 20110101, end: 20170717

REACTIONS (6)
  - Neck pain [Recovered/Resolved]
  - Paraesthesia [Recovered/Resolved]
  - Spinal column stenosis [Recovered/Resolved]
  - Procedural pain [Recovering/Resolving]
  - Back pain [Recovered/Resolved]
  - Muscle spasms [Recovered/Resolved]

NARRATIVE: CASE EVENT DATE: 2014
